FAERS Safety Report 8579444-2 (Version None)
Quarter: 2012Q3

REPORT INFORMATION
  Report Type: 
  Country: None (occurrence: None)
  Receive Date: 20120808
  Receipt Date: 20120730
  Transmission Date: 20120928
  Serious: Yes (Hospitalization, Other)
  Sender: FDA-Public Use
  Company Number: TW-BAYER-2011-115993

PATIENT
  Age: 50 Year
  Sex: Female
  Weight: 49 kg

DRUGS (4)
  1. TRILEPTAL [Concomitant]
     Indication: CONVULSION
  2. YAZ [Suspect]
     Indication: UTERINE LEIOMYOMA
     Dosage: UNK
     Route: 048
     Dates: start: 20090601, end: 20090701
  3. YAZ [Suspect]
     Indication: CONTRACEPTION
  4. YAZ [Suspect]
     Indication: ACNE

REACTIONS (10)
  - CEREBRAL VENOUS THROMBOSIS [None]
  - AMNESIA [None]
  - DYSLOGIA [None]
  - SUICIDE ATTEMPT [None]
  - CEREBRAL HAEMORRHAGE [None]
  - DYSPHONIA [None]
  - CEREBRAL INFARCTION [None]
  - HYPOAESTHESIA [None]
  - DEPRESSION [None]
  - CONVULSION [None]
